FAERS Safety Report 18107633 (Version 1)
Quarter: 2020Q3

REPORT INFORMATION
  Report Type: Spontaneous
  Country: US (occurrence: US)
  Receive Date: 20200803
  Receipt Date: 20200803
  Transmission Date: 20201103
  Serious: Yes (Hospitalization)
  Sender: FDA-Public Use
  Company Number: None

PATIENT
  Age: 50 Year
  Sex: Female

DRUGS (32)
  1. SOLIFENACIN [Concomitant]
     Active Substance: SOLIFENACIN
  2. GABAPENTIN. [Concomitant]
     Active Substance: GABAPENTIN
  3. MERCAPTUPUR [Concomitant]
  4. CELECOXIB. [Concomitant]
     Active Substance: CELECOXIB
  5. FEROSUL [Concomitant]
     Active Substance: FERROUS SULFATE
  6. RISEDRONATE [Concomitant]
     Active Substance: RISEDRONATE SODIUM
  7. OTEZLA [Concomitant]
     Active Substance: APREMILAST
  8. A?HYDROCORT [Concomitant]
     Active Substance: HYDROCORTISONE SODIUM SUCCINATE
  9. TRIAMCINOLONE [Concomitant]
     Active Substance: TRIAMCINOLONE
  10. MOMETASONE [Concomitant]
     Active Substance: MOMETASONE
  11. CLOBETASOL [Concomitant]
     Active Substance: CLOBETASOL
  12. METAXOLONE [Concomitant]
     Active Substance: METAXALONE
  13. HUMIRA [Suspect]
     Active Substance: ADALIMUMAB
     Indication: PSORIATIC ARTHROPATHY
     Route: 058
     Dates: start: 20200217
  14. FLUCONAZOLE. [Concomitant]
     Active Substance: FLUCONAZOLE
  15. MESALAMINE. [Concomitant]
     Active Substance: MESALAMINE
  16. KETOCANAZOLE [Concomitant]
  17. FLUOCIN ACET OIL SCALP [Concomitant]
  18. METHYLPRED [Concomitant]
     Active Substance: METHYLPREDNISOLONE
  19. METRONIDAZOL [Concomitant]
     Active Substance: METRONIDAZOLE
  20. CIPROFLOXACIN. [Concomitant]
     Active Substance: CIPROFLOXACIN
  21. VANCOMYCIN [Concomitant]
     Active Substance: VANCOMYCIN
  22. HYDROCO/APAP [Concomitant]
     Active Substance: ACETAMINOPHEN\HYDROCODONE
  23. GAVILYTE?G SOL [Concomitant]
  24. LIDOCAINE. [Concomitant]
     Active Substance: LIDOCAINE
  25. HALOBETASOL [Concomitant]
     Active Substance: HALOBETASOL PROPIONATE
  26. DOXYCYCL HYC [Concomitant]
  27. FAMOTIDINE. [Concomitant]
     Active Substance: FAMOTIDINE
  28. PREDNISONE. [Concomitant]
     Active Substance: PREDNISONE
  29. DICYCLOMIN [Concomitant]
  30. FOLIC ACID. [Concomitant]
     Active Substance: FOLIC ACID
  31. FLUTICASONE. [Concomitant]
     Active Substance: FLUTICASONE
  32. METHOTREXATE. [Concomitant]
     Active Substance: METHOTREXATE

REACTIONS (1)
  - Condition aggravated [None]

NARRATIVE: CASE EVENT DATE: 20200725
